FAERS Safety Report 18973991 (Version 4)
Quarter: 2021Q3

REPORT INFORMATION
  Report Type: Spontaneous
  Country: US (occurrence: US)
  Receive Date: 20210305
  Receipt Date: 20210906
  Transmission Date: 20211014
  Serious: No
  Sender: FDA-Public Use
  Company Number: US-ELI_LILLY_AND_COMPANY-US202102002873

PATIENT
  Age: 77 Year
  Sex: Male

DRUGS (7)
  1. LANTUS [Suspect]
     Active Substance: INSULIN GLARGINE
     Indication: PRODUCT USED FOR UNKNOWN INDICATION
     Dosage: 10 U, DAILY (NIGHT)
     Route: 065
  2. METFORMIN [Concomitant]
     Active Substance: METFORMIN HYDROCHLORIDE
     Indication: PRODUCT USED FOR UNKNOWN INDICATION
  3. HUMULIN 70/30 [Suspect]
     Active Substance: INSULIN HUMAN
     Indication: TYPE 2 DIABETES MELLITUS
     Dosage: 70 U, BID
     Route: 065
     Dates: start: 20210202
  4. HUMULIN 70/30 [Suspect]
     Active Substance: INSULIN HUMAN
     Dosage: 60 U, BID (MORNING AND EVENING)
     Route: 065
  5. HUMULIN 70/30 [Suspect]
     Active Substance: INSULIN HUMAN
     Dosage: UNK UNK, UNKNOWN
     Route: 065
  6. HUMULIN 70/30 [Suspect]
     Active Substance: INSULIN HUMAN
     Indication: TYPE 2 DIABETES MELLITUS
     Dosage: 70 U, BID
     Route: 065
     Dates: start: 20210202
  7. HUMULIN 70/30 [Suspect]
     Active Substance: INSULIN HUMAN
     Dosage: UNK UNK, UNKNOWN
     Route: 065

REACTIONS (8)
  - Glycosylated haemoglobin increased [Unknown]
  - Nausea [Unknown]
  - Dizziness [Unknown]
  - Incorrect dose administered [Unknown]
  - Feeling abnormal [Unknown]
  - Blood glucose decreased [Unknown]
  - Headache [Unknown]
  - Tremor [Unknown]

NARRATIVE: CASE EVENT DATE: 20210202
